FAERS Safety Report 13184295 (Version 1)
Quarter: 2017Q1

REPORT INFORMATION
  Report Type: Spontaneous
  Country: US (occurrence: US)
  Receive Date: 20170203
  Receipt Date: 20170203
  Transmission Date: 20170428
  Serious: No
  Sender: FDA-Public Use
  Company Number: US-BAYER-2017-020914

PATIENT
  Age: 65 Year
  Sex: Male

DRUGS (2)
  1. CHLOR-TRIMETON 12 HOUR [Suspect]
     Active Substance: CHLORPHENIRAMINE MALEATE
     Route: 048
     Dates: start: 1997, end: 20170131
  2. IBUPROFEN. [Concomitant]
     Active Substance: IBUPROFEN
     Route: 065

REACTIONS (2)
  - Expired product administered [Unknown]
  - Product use issue [Unknown]

NARRATIVE: CASE EVENT DATE: 1997
